FAERS Safety Report 5209867-0 (Version None)
Quarter: 2006Q4

REPORT INFORMATION
  Report Type: 
  Country: None (occurrence: None)
  Receive Date: 20061128
  Receipt Date: 20061026
  Transmission Date: 20070319
  Serious: No
  Sender: FDA-Public Use
  Company Number: S06-USA-04504-01

PATIENT
  Age: 60 Year
  Sex: Female

DRUGS (11)
  1. CAMPRAL [Suspect]
     Indication: ALCOHOLISM
     Dosage: 666 MG TID PO
     Route: 048
     Dates: start: 20061009, end: 20061024
  2. CAMPRAL [Suspect]
     Indication: ALCOHOLISM
     Dosage: 333 MG TID PO
     Route: 048
     Dates: start: 20061025, end: 20061026
  3. CAMPRAL [Suspect]
     Indication: ALCOHOLISM
     Dosage: 333 MG QD PO
     Route: 048
     Dates: start: 20061027, end: 20061027
  4. CAMPRAL [Suspect]
     Indication: ALCOHOLISM
     Dosage: 333 MG BID PO
     Route: 048
     Dates: start: 20061028, end: 20061028
  5. CAMPRAL [Suspect]
     Indication: ALCOHOLISM
     Dosage: 333 MG QD PO
     Route: 048
     Dates: start: 20061027, end: 20061027
  6. CAMPRAL [Suspect]
     Indication: ALCOHOLISM
     Dosage: 333 MG TID PO
     Route: 048
     Dates: start: 20061029
  7. EVISTA [Concomitant]
  8. LISINOPRIL [Concomitant]
  9. MULTI-VITAMIN [Concomitant]
  10. CALCIUM [Concomitant]
  11. GLUCOSAMINE [Concomitant]

REACTIONS (1)
  - PRURITUS [None]
